FAERS Safety Report 9242741 (Version 2)
Quarter: 2013Q2

REPORT INFORMATION
  Report Type: Report from Study
  Country: US (occurrence: US)
  Receive Date: 20130419
  Receipt Date: 20130605
  Transmission Date: 20140414
  Serious: Yes (Other)
  Sender: FDA-Public Use
  Company Number: PHEH2013US008545

PATIENT
  Age: 63 Year
  Sex: Female
  Weight: 76.8 kg

DRUGS (1)
  1. GLEEVEC [Suspect]
     Indication: CHRONIC MYELOID LEUKAEMIA
     Dosage: 400 MG, DAILY
     Route: 048
     Dates: start: 1998

REACTIONS (2)
  - Fall [Recovering/Resolving]
  - Upper limb fracture [Unknown]
